FAERS Safety Report 4947110-8 (Version None)
Quarter: 2006Q1

REPORT INFORMATION
  Report Type: 
  Country: None (occurrence: None)
  Receive Date: 20060314
  Receipt Date: 20060221
  Transmission Date: 20060701
  Serious: Yes (Hospitalization)
  Sender: FDA-Public Use
  Company Number: US200602004041

PATIENT
  Age: 88 Year
  Sex: Female

DRUGS (1)
  1. TERIPARATIDE (TERIPARATIDE)PEN, DISPOSABLE [Suspect]

REACTIONS (6)
  - ANKLE FRACTURE [None]
  - FOOT FRACTURE [None]
  - ROAD TRAFFIC ACCIDENT [None]
  - SPLENIC HAEMORRHAGE [None]
  - SPLENIC RUPTURE [None]
  - STERNAL INJURY [None]
